FAERS Safety Report 9078460 (Version 3)
Quarter: 2014Q1

REPORT INFORMATION
  Report Type: Spontaneous
  Country: US (occurrence: US)
  Receive Date: 20130215
  Receipt Date: 20140106
  Transmission Date: 20141002
  Serious: Yes (Hospitalization, Disabling, Other)
  Sender: FDA-Public Use
  Company Number: US-009507513-1302USA006750

PATIENT
  Sex: Female
  Weight: 89.34 kg

DRUGS (1)
  1. NUVARING [Suspect]
     Indication: CONTRACEPTION
     Dosage: UNK
     Route: 067
     Dates: start: 201002, end: 20100324

REACTIONS (4)
  - Pulmonary embolism [Unknown]
  - Coagulopathy [Unknown]
  - Pyuria [Unknown]
  - Presyncope [Unknown]
